FAERS Safety Report 25481153 (Version 4)
Quarter: 2025Q4

REPORT INFORMATION
  Report Type: Report from Study
  Country: US (occurrence: US)
  Receive Date: 20250626
  Receipt Date: 20251105
  Transmission Date: 20260118
  Serious: Yes (Hospitalization, Other)
  Sender: INSMED
  Company Number: US-INSMED, INC.-2025-02277-US

PATIENT
  Sex: Female

DRUGS (2)
  1. ARIKAYCE [Suspect]
     Active Substance: AMIKACIN
     Indication: Product used for unknown indication
     Dosage: 590 MILLIGRAM, TIW
     Route: 055
     Dates: start: 202308
  2. ARIKAYCE [Suspect]
     Active Substance: AMIKACIN
     Dosage: 590 MILLIGRAM, TIW
     Route: 055

REACTIONS (6)
  - Hospitalisation [Unknown]
  - Chemotherapy [Unknown]
  - Neoplasm malignant [Unknown]
  - Adverse drug reaction [Unknown]
  - Off label use [Unknown]
  - Therapy interrupted [Unknown]
